FAERS Safety Report 5051758-2 (Version None)
Quarter: 2006Q3

REPORT INFORMATION
  Report Type: 
  Country: None (occurrence: None)
  Receive Date: 20060711
  Receipt Date: 20060616
  Transmission Date: 20061208
  Serious: Yes (Hospitalization, Other)
  Sender: FDA-Public Use
  Company Number: US200606005417

PATIENT
  Age: 71 Year
  Sex: Male

DRUGS (3)
  1. HUMULIN N [Suspect]
     Dates: start: 20030101
  2. HUMALOG PEN [Suspect]
     Dosage: SEE IMAGE
     Dates: start: 20040101, end: 20060608
  3. HUMALOG PEN [Suspect]
     Dosage: SEE IMAGE
     Dates: start: 20060608

REACTIONS (10)
  - ANGINA PECTORIS [None]
  - BLISTER [None]
  - BLOOD GLUCOSE FLUCTUATION [None]
  - CONTUSION [None]
  - GANGRENE [None]
  - HYPERKERATOSIS [None]
  - OPEN WOUND [None]
  - PERIPHERAL VASCULAR DISORDER [None]
  - PHARMACEUTICAL PRODUCT COMPLAINT [None]
  - WOUND [None]
